FAERS Safety Report 8565019-8 (Version None)
Quarter: 2012Q3

REPORT INFORMATION
  Report Type: 
  Country: None (occurrence: None)
  Receive Date: 20120803
  Receipt Date: 20120730
  Transmission Date: 20120928
  Serious: No
  Sender: FDA-Public Use
  Company Number: US-PFIZER INC-2012184440

PATIENT
  Sex: Female
  Weight: 68.027 kg

DRUGS (2)
  1. NORVASC [Concomitant]
     Indication: HYPERTENSION
     Dosage: 10 MG, DAILY
  2. IBUPROFEN (ADVIL) [Suspect]
     Indication: ARTHRALGIA
     Dosage: UNK, DAILY
     Route: 048
     Dates: start: 20120727

REACTIONS (3)
  - NAUSEA [None]
  - RASH GENERALISED [None]
  - SWELLING FACE [None]
